FAERS Safety Report 8095494-7 (Version None)
Quarter: 2012Q1

REPORT INFORMATION
  Report Type: 
  Country: None (occurrence: None)
  Receive Date: 20120129
  Receipt Date: 20111218
  Transmission Date: 20120608
  Serious: No
  Sender: FDA-Public Use
  Company Number: US-ABBOTT-11P-163-0884358-00

PATIENT
  Age: 67 Year
  Sex: Female

DRUGS (4)
  1. HUMIRA [Suspect]
     Indication: COLITIS ULCERATIVE
     Dates: start: 20110201
  2. SIMVASTATIN [Concomitant]
     Indication: BLOOD CHOLESTEROL INCREASED
     Dosage: 1/2 PILL ONCE A DAY
  3. MESALAMINE [Concomitant]
     Dosage: AT NIGHT
  4. MESALAMINE [Concomitant]
     Indication: COLITIS ULCERATIVE

REACTIONS (3)
  - DIZZINESS [None]
  - SINUS CONGESTION [None]
  - OROPHARYNGEAL PAIN [None]
